FAERS Safety Report 17922287 (Version 3)
Quarter: 2021Q2

REPORT INFORMATION
  Report Type: Spontaneous
  Country: US (occurrence: US)
  Receive Date: 20200622
  Receipt Date: 20210622
  Transmission Date: 20210717
  Serious: Yes (Other)
  Sender: FDA-Public Use
  Company Number: US-GILEAD-2020-0474219

PATIENT
  Age: 48 Year
  Sex: Male
  Weight: 58.05 kg

DRUGS (23)
  1. VIREAD [Suspect]
     Active Substance: TENOFOVIR DISOPROXIL FUMARATE
     Indication: HIV INFECTION
     Dosage: UNK
     Route: 048
     Dates: start: 2002, end: 2014
  2. VIREAD [Suspect]
     Active Substance: TENOFOVIR DISOPROXIL FUMARATE
     Dosage: UNK
     Route: 048
     Dates: start: 2002, end: 20141019
  3. TRUVADA [Suspect]
     Active Substance: EMTRICITABINE\TENOFOVIR DISOPROXIL FUMARATE
     Indication: HIV INFECTION
     Dosage: UNK
     Route: 048
     Dates: start: 2005, end: 20190401
  4. ALENDRONATE [Concomitant]
     Active Substance: ALENDRONATE SODIUM
  5. AMOXICILLIN. [Concomitant]
     Active Substance: AMOXICILLIN
  6. ASPIRIN (E.C.) [Concomitant]
     Active Substance: ASPIRIN
  7. LITHIUM. [Concomitant]
     Active Substance: LITHIUM
  8. TRIZIVIR [Concomitant]
     Active Substance: ABACAVIR SULFATE\LAMIVUDINE\ZIDOVUDINE
  9. ACETAMINOPHEN. [Concomitant]
     Active Substance: ACETAMINOPHEN
  10. AMITRIPTYLINE [Concomitant]
     Active Substance: AMITRIPTYLINE
  11. EPZICOM [Concomitant]
     Active Substance: ABACAVIR SULFATE\LAMIVUDINE
  12. CELEBREX [Concomitant]
     Active Substance: CELECOXIB
  13. AVEED [Concomitant]
     Active Substance: TESTOSTERONE UNDECANOATE
  14. OMEPRAZOLE. [Concomitant]
     Active Substance: OMEPRAZOLE
  15. VIREAD [Suspect]
     Active Substance: TENOFOVIR DISOPROXIL FUMARATE
     Dosage: UNK
     Route: 048
     Dates: start: 2002, end: 20140319
  16. METHOTREXATE. [Concomitant]
     Active Substance: METHOTREXATE
  17. TIVICAY [Concomitant]
     Active Substance: DOLUTEGRAVIR SODIUM
  18. TESTOPEL [Concomitant]
     Active Substance: TESTOSTERONE
  19. LEXAPRO [Concomitant]
     Active Substance: ESCITALOPRAM OXALATE
  20. VALIUM [Concomitant]
     Active Substance: DIAZEPAM
  21. DOVATO [Concomitant]
     Active Substance: DOLUTEGRAVIR SODIUM\LAMIVUDINE
  22. TESTIM [Concomitant]
     Active Substance: TESTOSTERONE
  23. TRIUMEQ [Concomitant]
     Active Substance: ABACAVIR SULFATE\DOLUTEGRAVIR SODIUM\LAMIVUDINE

REACTIONS (9)
  - Pain [Unknown]
  - Emotional distress [Unknown]
  - Osteonecrosis [Not Recovered/Not Resolved]
  - Osteoporosis [Not Recovered/Not Resolved]
  - Bone density decreased [Unknown]
  - Hip arthroplasty [Unknown]
  - Tooth loss [Not Recovered/Not Resolved]
  - Osteopenia [Unknown]
  - Bone loss [Unknown]

NARRATIVE: CASE EVENT DATE: 201304
